FAERS Safety Report 7458187-2 (Version None)
Quarter: 2011Q2

REPORT INFORMATION
  Report Type: 
  Country: None (occurrence: None)
  Receive Date: 20110504
  Receipt Date: 20110420
  Transmission Date: 20111010
  Serious: Yes (Other)
  Sender: FDA-Public Use
  Company Number: CA-JNJFOC-20110409325

PATIENT
  Sex: Female
  Weight: 53.2 kg

DRUGS (4)
  1. REMICADE [Suspect]
     Indication: CROHN'S DISEASE
     Route: 042
  2. COZAAR [Concomitant]
  3. HYZAAR [Concomitant]
  4. DESOGESTREL AND ETHINYL ESTRADIOL [Concomitant]
     Indication: CONTRACEPTION

REACTIONS (7)
  - VOMITING [None]
  - NAUSEA [None]
  - EYE INFLAMMATION [None]
  - BRAIN NEOPLASM BENIGN [None]
  - DIZZINESS [None]
  - DIARRHOEA [None]
  - NASOPHARYNGITIS [None]
